FAERS Safety Report 8584279-0 (Version None)
Quarter: 2012Q3

REPORT INFORMATION
  Report Type: 
  Country: None (occurrence: None)
  Receive Date: 20120810
  Receipt Date: 20120801
  Transmission Date: 20120928
  Serious: Yes (Hospitalization, Other)
  Sender: FDA-Public Use
  Company Number: CZ-BIOGENIDEC-2012BI027838

PATIENT
  Sex: Female

DRUGS (3)
  1. AVONEX [Suspect]
     Indication: MULTIPLE SCLEROSIS
     Route: 030
     Dates: start: 20081101
  2. IMURAN [Concomitant]
     Dates: end: 20100501
  3. MEDROL [Concomitant]

REACTIONS (4)
  - PARANEOPLASTIC SYNDROME [None]
  - PANCREATIC NEOPLASM [None]
  - METASTASES TO LIVER [None]
  - MULTIPLE SCLEROSIS RELAPSE [None]
